FAERS Safety Report 6117053 (Version 6)
Quarter: 2019Q3

REPORT INFORMATION
  Report Type: Spontaneous
  Country: GB (occurrence: GB)
  Receive Date: 20060828
  Receipt Date: 20190723
  Transmission Date: 20191005
  Serious: Yes (Hospitalization, Disabling, Other)
  Sender: FDA-Public Use
  Company Number: GB-BRISTOL-MYERS SQUIBB COMPANY-13478607

PATIENT
  Age: 36 Year
  Sex: Male

DRUGS (4)
  1. DEXAMETHASONE. [Suspect]
     Active Substance: DEXAMETHASONE
     Indication: PROPHYLAXIS OF NAUSEA AND VOMITING
     Dosage: 4 MILLIGRAM PER DAY (DAYS 2-5, 4 CYCLES 3 WEEKS APART )
     Route: 048
  2. BRIPLATIN [Suspect]
     Active Substance: CISPLATIN
     Indication: TESTIS CANCER
     Dosage: 40 MILLIGRAM/SQ. METER, QD  (DAYS 1-2, 4 CYCLES 3 WEEKS APART )
     Route: 042
  3. VEPESID [Suspect]
     Active Substance: ETOPOSIDE
     Indication: TESTIS CANCER
     Dosage: 165 MILLIGRAM/SQ. METER, QD (DAYS 1-3, 4 CYCLES 3 WEEKS APART)
     Route: 042
  4. DEXAMETHASONE. [Suspect]
     Active Substance: DEXAMETHASONE
     Indication: TESTIS CANCER
     Dosage: 8 MG ON DAY 1. 4 MG - CYCLICAL. DAYS 2 TO 5 OF EACH CYCLE.
     Route: 048

REACTIONS (3)
  - Gait disturbance [Unknown]
  - Groin pain [Unknown]
  - Osteonecrosis [Recovering/Resolving]
